FAERS Safety Report 8213564-7 (Version None)
Quarter: 2012Q1

REPORT INFORMATION
  Report Type: 
  Country: None (occurrence: None)
  Receive Date: 20120315
  Receipt Date: 20120217
  Transmission Date: 20120608
  Serious: Yes (Hospitalization)
  Sender: FDA-Public Use
  Company Number: PHHO2011DE019575

PATIENT
  Sex: Female
  Weight: 65 kg

DRUGS (6)
  1. EVEROLIMUS [Suspect]
     Indication: LIVER TRANSPLANT
     Dosage: 2 MG, QD
     Route: 048
     Dates: start: 20111107
  2. TACROLIMUS [Suspect]
     Indication: LIVER TRANSPLANT
     Dosage: 2 MG, QD
     Route: 048
     Dates: start: 20100212
  3. CETRIZIN [Concomitant]
     Indication: PRURITUS
     Dosage: 10 MG, QD
     Dates: start: 20110201
  4. BONDIOL [Concomitant]
     Indication: OSTEOMALACIA
     Dosage: 1 UG, QD
     Dates: start: 20100213
  5. AMITRIPTYLINE HCL [Concomitant]
     Indication: MIGRAINE
     Dosage: 25 MG, QD
     Dates: start: 20101108
  6. SUMATRIPTAN [Concomitant]
     Indication: MIGRAINE
     Dosage: 100 MG, UNK
     Dates: start: 20101029

REACTIONS (1)
  - MIGRAINE [None]
